FAERS Safety Report 19901588 (Version 2)
Quarter: 2021Q4

REPORT INFORMATION
  Report Type: Spontaneous
  Country: US (occurrence: US)
  Receive Date: 20210930
  Receipt Date: 20211007
  Transmission Date: 20220303
  Serious: No
  Sender: FDA-Public Use
  Company Number: US-MYLANLABS-2021M1062102

PATIENT
  Sex: Male

DRUGS (1)
  1. LIDOCAINE PATCH [Suspect]
     Active Substance: LIDOCAINE
     Indication: Lung carcinoma cell type unspecified stage IV
     Dosage: 5 PERCENT
     Route: 003

REACTIONS (3)
  - Product adhesion issue [Unknown]
  - Product storage error [Unknown]
  - Product use in unapproved indication [Unknown]
